FAERS Safety Report 10160429 (Version 1)
Quarter: 2014Q2

REPORT INFORMATION
  Report Type: Spontaneous
  Country: US (occurrence: US)
  Receive Date: 20140508
  Receipt Date: 20140508
  Transmission Date: 20141212
  Serious: Yes (Other)
  Sender: FDA-Public Use
  Company Number: US-BAXTER-2014BAX022182

PATIENT
  Sex: Female

DRUGS (1)
  1. TISSEEL VH S/D [Suspect]
     Indication: PRODUCT USED FOR UNKNOWN INDICATION
     Route: 065

REACTIONS (3)
  - Diaphragmatic rupture [Unknown]
  - Cardiac arrest [Unknown]
  - Device use error [Unknown]
